FAERS Safety Report 6398237-8 (Version None)
Quarter: 2009Q4

REPORT INFORMATION
  Report Type: 
  Country: None (occurrence: None)
  Receive Date: 20091013
  Receipt Date: 20091005
  Transmission Date: 20100525
  Serious: Yes (Hospitalization, Other)
  Sender: FDA-Public Use
  Company Number: PHHO2009US08512

PATIENT
  Age: 77 Year
  Sex: Male
  Weight: 82.7 kg

DRUGS (10)
  1. RAD 666 RAD+TAB [Suspect]
     Indication: MULTIPLE MYELOMA
     Dosage: 5 MG/DAILY
     Route: 048
     Dates: start: 20090622, end: 20090706
  2. RAD 666 RAD+TAB [Suspect]
     Dosage: NO TREATMENT
     Dates: start: 20090707
  3. REVLIMID [Suspect]
     Indication: MULTIPLE MYELOMA
     Dosage: 15MG /DAILY
     Route: 048
     Dates: start: 20090622, end: 20090705
  4. REVLIMID [Suspect]
     Dosage: NO TREATMENT
     Dates: start: 20090706
  5. ASPIRIN [Concomitant]
  6. CIPRO [Concomitant]
  7. NEURONTIN [Concomitant]
  8. LEVOTHYROXINE [Concomitant]
  9. POTASSIUM CHLORIDE [Concomitant]
  10. VALTRAX [Concomitant]

REACTIONS (10)
  - CHILLS [None]
  - DECREASED APPETITE [None]
  - FATIGUE [None]
  - HYPOKALAEMIA [None]
  - HYPONATRAEMIA [None]
  - LUNG CONSOLIDATION [None]
  - NEUTROPENIA [None]
  - PLEURAL EFFUSION [None]
  - PNEUMONIA PNEUMOCOCCAL [None]
  - PYREXIA [None]
